FAERS Safety Report 4916090-3 (Version None)
Quarter: 2006Q1

REPORT INFORMATION
  Report Type: 
  Country: None (occurrence: None)
  Receive Date: 20060214
  Receipt Date: 20060208
  Transmission Date: 20060701
  Serious: Yes (Life-Threatening, Hospitalization, Other)
  Sender: FDA-Public Use
  Company Number: US-2005-027960

PATIENT
  Age: 42 Year
  Sex: Male
  Weight: 71.7 kg

DRUGS (22)
  1. LEUKINE [Suspect]
     Indication: CROHN'S DISEASE
     Dosage: 1.5 UG/KG, 1X/DAY, SUBCUTANEOUS
     Route: 058
     Dates: start: 20050311, end: 20050505
  2. LEUKINE [Suspect]
     Indication: CROHN'S DISEASE
     Dosage: 1.5 UG/KG, 1X/DAY, SUBCUTANEOUS
     Route: 058
     Dates: start: 20050607, end: 20050802
  3. LEUKINE [Suspect]
     Indication: CROHN'S DISEASE
     Dosage: 1.5 UG/KG, 1X/DAY, SUBCUTANEOUS
     Route: 058
     Dates: start: 20050818, end: 20051011
  4. LEUKINE [Suspect]
     Indication: CROHN'S DISEASE
     Dosage: 1.5 UG/KG, 1X/DAY, SUBCUTANEOUS
     Route: 058
     Dates: start: 20051107, end: 20051222
  5. ANTIBIOTICS [Concomitant]
  6. DEMEROL [Concomitant]
  7. VERSED [Concomitant]
  8. BOWEL PREPARATION [Concomitant]
  9. PREDNISONE [Concomitant]
  10. PERCOCET [Concomitant]
  11. CENTRUM SILVER (ZINC, RETINOL, TOCOPHERYL ACETATE, MINERALS NOS, VITAM [Concomitant]
  12. OSCAL [Concomitant]
  13. PRILOSEC [Concomitant]
  14. CIPROFLOXACIN [Concomitant]
  15. FLAGYL [Concomitant]
  16. AMOXICILLIN SODIUM W/CLAVULANATE POTASSIUM (AMOXICILLIN SODIUM, CLAVUL [Concomitant]
  17. CORTISONE ACETATE [Concomitant]
  18. IMODIUM [Concomitant]
  19. IMODIUM [Concomitant]
  20. FLAGYL [Concomitant]
  21. CIPRO ^MILES^ (CIPROFLOXACIN HYDROCHORIDE) [Concomitant]
  22. IMODIUM [Concomitant]

REACTIONS (14)
  - ACUTE MYOCARDIAL INFARCTION [None]
  - ANAL FISTULA [None]
  - CORONARY ARTERY DISEASE [None]
  - CORONARY ARTERY STENOSIS [None]
  - DIARRHOEA [None]
  - DYSPEPSIA [None]
  - ELECTROCARDIOGRAM Q WAVES [None]
  - INFLAMMATION [None]
  - INJECTION SITE PAIN [None]
  - INJECTION SITE REACTION [None]
  - OSTEOPENIA [None]
  - PAIN IN EXTREMITY [None]
  - SCAR [None]
  - WEIGHT DECREASED [None]
